FAERS Safety Report 8094683-5 (Version None)
Quarter: 2012Q1

REPORT INFORMATION
  Report Type: 
  Country: None (occurrence: None)
  Receive Date: 20120129
  Receipt Date: 20111214
  Transmission Date: 20120608
  Serious: No
  Sender: FDA-Public Use
  Company Number: US-ABBOTT-11P-163-0885243-00

PATIENT
  Sex: Female
  Weight: 44.946 kg

DRUGS (10)
  1. LODINE [Concomitant]
     Indication: RHEUMATOID ARTHRITIS
  2. LOVAZA [Concomitant]
     Indication: MEDICAL DIET
  3. HUMIRA [Suspect]
     Indication: RHEUMATOID ARTHRITIS
     Dates: start: 20110401
  4. CALCIUM [Concomitant]
     Indication: MINERAL SUPPLEMENTATION
  5. SIMVASTATIN [Concomitant]
     Indication: BLOOD CHOLESTEROL INCREASED
  6. METHOTREXATE [Concomitant]
     Indication: RHEUMATOID ARTHRITIS
  7. METFORMIN HCL [Concomitant]
     Indication: DIABETES MELLITUS
  8. MULTI-VITAMIN [Concomitant]
     Indication: VITAMIN SUPPLEMENTATION
  9. FOLIC ACID [Concomitant]
     Indication: RHEUMATOID ARTHRITIS
  10. OMEPRAZOLE [Concomitant]
     Indication: GASTROOESOPHAGEAL REFLUX DISEASE

REACTIONS (2)
  - WEIGHT DECREASED [None]
  - INJECTION SITE REACTION [None]
